FAERS Safety Report 9925614 (Version 2)
Quarter: 2014Q2

REPORT INFORMATION
  Report Type: Spontaneous
  Country: DK (occurrence: DE)
  Receive Date: 20140226
  Receipt Date: 20140527
  Transmission Date: 20141212
  Serious: Yes (Other)
  Sender: FDA-Public Use
  Company Number: DE-FRI-1000054534

PATIENT
  Age: 73 Year
  Sex: Male
  Weight: 76.5 kg

DRUGS (9)
  1. CITALOPRAM [Suspect]
     Dosage: 10 MG
     Route: 048
     Dates: start: 20140125
  2. ASS [Concomitant]
     Indication: CORONARY ARTERY DISEASE
     Dosage: 100 MG
     Dates: start: 20140113, end: 20140207
  3. SIMVASTATIN [Concomitant]
     Indication: CORONARY ARTERY DISEASE
     Dosage: 20 MG
     Dates: start: 20140113, end: 20140207
  4. NEBILET [Concomitant]
     Indication: HYPERTENSION
     Dosage: 5 MG
     Dates: start: 20140113, end: 20140207
  5. PANTOZOL [Concomitant]
     Indication: GASTRITIS
     Dosage: 20 MG
     Dates: start: 20140113, end: 20140207
  6. ALDACTONE [Concomitant]
     Indication: CARDIAC FAILURE
     Dosage: 25 MG
     Dates: start: 20140113, end: 20140207
  7. TOREM [Concomitant]
     Indication: CARDIAC FAILURE
     Dosage: 5 MG
     Dates: start: 20140113, end: 20140207
  8. OMNIC [Concomitant]
     Indication: BENIGN PROSTATIC HYPERPLASIA
     Dosage: 0.4 MG
     Dates: start: 20140113, end: 20140207
  9. TIAPRIDEX [Concomitant]
     Indication: ANXIETY
     Dosage: 200 MG
     Dates: start: 20140113, end: 20140207

REACTIONS (1)
  - Hypersensitivity vasculitis [Unknown]
